FAERS Safety Report 5929339-5 (Version None)
Quarter: 2008Q4

REPORT INFORMATION
  Report Type: 
  Country: None (occurrence: None)
  Receive Date: 20081023
  Receipt Date: 20081023
  Transmission Date: 20090506
  Serious: Yes (Hospitalization)
  Sender: FDA-Public Use
  Company Number: None

PATIENT
  Age: 22 Year
  Sex: Male
  Weight: 68.04 kg

DRUGS (1)
  1. ARIPIPRAZOLE [Suspect]
     Indication: SCHIZOPHRENIA, PARANOID TYPE
     Dosage: 20 MG EVERY DAY PO
     Route: 048
     Dates: start: 20071126, end: 20080418

REACTIONS (4)
  - DYSARTHRIA [None]
  - FLAT AFFECT [None]
  - MUSCULOSKELETAL STIFFNESS [None]
  - TARDIVE DYSKINESIA [None]
